APPROVED DRUG PRODUCT: PRETOMANID
Active Ingredient: PRETOMANID
Strength: 200MG
Dosage Form/Route: TABLET;ORAL
Application: N212862 | Product #001
Applicant: MYLAN IRELAND LTD
Approved: Aug 14, 2019 | RLD: Yes | RS: Yes | Type: RX

EXCLUSIVITY:
Code: NCE | Date: Aug 14, 2024
Code: ODE-253 | Date: Aug 14, 2026
Code: GAIN | Date: Aug 14, 2029